FAERS Safety Report 24186533 (Version 7)
Quarter: 2025Q3

REPORT INFORMATION
  Report Type: Report from Study
  Country: US (occurrence: US)
  Receive Date: 20240808
  Receipt Date: 20250709
  Transmission Date: 20251020
  Serious: Yes (Hospitalization, Other)
  Sender: TAKEDA
  Company Number: US-SHIRE-US202026297

PATIENT
  Sex: Female
  Weight: 102 kg

DRUGS (31)
  1. HUMAN IMMUNOGLOBULIN G\HYALURONIDASE RECOMBINANT HUMAN [Suspect]
     Active Substance: HUMAN IMMUNOGLOBULIN G\HYALURONIDASE (HUMAN RECOMBINANT)
     Indication: Immunodeficiency common variable
     Dosage: 40 GRAM, Q3WEEKS
     Dates: start: 2017
  2. HUMAN IMMUNOGLOBULIN G\HYALURONIDASE RECOMBINANT HUMAN [Suspect]
     Active Substance: HUMAN IMMUNOGLOBULIN G\HYALURONIDASE (HUMAN RECOMBINANT)
     Dosage: 40 GRAM, Q4WEEKS
     Dates: start: 20180404
  3. HUMAN IMMUNOGLOBULIN G\HYALURONIDASE RECOMBINANT HUMAN [Suspect]
     Active Substance: HUMAN IMMUNOGLOBULIN G\HYALURONIDASE (HUMAN RECOMBINANT)
     Dosage: 40 GRAM, Q4WEEKS
  4. HUMAN IMMUNOGLOBULIN G\HYALURONIDASE RECOMBINANT HUMAN [Suspect]
     Active Substance: HUMAN IMMUNOGLOBULIN G\HYALURONIDASE (HUMAN RECOMBINANT)
     Dosage: 35 GRAM, Q4WEEKS
  5. METRONIDAZOLE [Suspect]
     Active Substance: METRONIDAZOLE
     Indication: Product used for unknown indication
  6. MACROBID [Suspect]
     Active Substance: NITROFURANTOIN\NITROFURANTOIN MONOHYDRATE
     Indication: Product used for unknown indication
  7. ANCEF [Suspect]
     Active Substance: CEFAZOLIN SODIUM
     Indication: Product used for unknown indication
  8. ACETAMINOPHEN [Concomitant]
     Active Substance: ACETAMINOPHEN
  9. AMLODIPINE BESYLATE [Concomitant]
     Active Substance: AMLODIPINE BESYLATE
  10. ATORVASTATIN CALCIUM [Concomitant]
     Active Substance: ATORVASTATIN CALCIUM
  11. HYDROCHLOROTHIAZIDE\TRIAMTERENE [Concomitant]
     Active Substance: HYDROCHLOROTHIAZIDE\TRIAMTERENE
  12. ZOLOFT [Concomitant]
     Active Substance: SERTRALINE HYDROCHLORIDE
  13. TRELEGY ELLIPTA [Concomitant]
     Active Substance: FLUTICASONE FUROATE\UMECLIDINIUM BROMIDE\VILANTEROL TRIFENATATE
  14. LIDOCAINE [Concomitant]
     Active Substance: LIDOCAINE
  15. LISINOPRIL [Concomitant]
     Active Substance: LISINOPRIL
  16. MONTELUKAST SODIUM [Concomitant]
     Active Substance: MONTELUKAST SODIUM
  17. EPINEPHRINE [Concomitant]
     Active Substance: EPINEPHRINE
  18. DIPHENHYDRAMINE [Concomitant]
     Active Substance: DIPHENHYDRAMINE
  19. FLUTICASONE PROPIONATE [Concomitant]
     Active Substance: FLUTICASONE PROPIONATE
  20. FENOFIBRATE [Concomitant]
     Active Substance: FENOFIBRATE
  21. LORATADINE [Concomitant]
     Active Substance: LORATADINE
     Indication: Product used for unknown indication
  22. SODIUM CHLORIDE [Concomitant]
     Active Substance: SODIUM CHLORIDE
  23. XANAX [Concomitant]
     Active Substance: ALPRAZOLAM
  24. FLUCONAZOLE [Concomitant]
     Active Substance: FLUCONAZOLE
  25. PROAIR HFA [Concomitant]
     Active Substance: ALBUTEROL SULFATE
  26. CALCIUM [Concomitant]
     Active Substance: CALCIUM
  27. B complex with c [Concomitant]
  28. EPIPEN [Concomitant]
     Active Substance: EPINEPHRINE
  29. DIPHENHYDRAMINE HYDROCHLORIDE [Concomitant]
     Active Substance: DIPHENHYDRAMINE HYDROCHLORIDE
  30. NASONEX [Concomitant]
     Active Substance: MOMETASONE FUROATE
  31. FASENRA [Concomitant]
     Active Substance: BENRALIZUMAB

REACTIONS (15)
  - Diverticulitis [Unknown]
  - Post procedural complication [Unknown]
  - Urinary tract infection [Unknown]
  - Staphylococcal infection [Unknown]
  - Cataract [Unknown]
  - Pneumonia [Unknown]
  - COVID-19 [Unknown]
  - Thrombosis [Unknown]
  - Sinusitis [Not Recovered/Not Resolved]
  - Drug hypersensitivity [Unknown]
  - Cystitis [Unknown]
  - Incorrect product administration duration [Unknown]
  - Asthma [Unknown]
  - Injection site pain [Unknown]
  - Upper respiratory tract infection [Unknown]
